FAERS Safety Report 8510451-1 (Version None)
Quarter: 2012Q3

REPORT INFORMATION
  Report Type: 
  Country: None (occurrence: None)
  Receive Date: 20120715
  Receipt Date: 20101126
  Transmission Date: 20120928
  Serious: Yes (Disabling)
  Sender: FDA-Public Use
  Company Number: PHHY2010CH80337

PATIENT
  Age: 71 Year
  Sex: Male

DRUGS (18)
  1. MELPHALAN HYDROCHLORIDE [Suspect]
     Indication: MULTIPLE MYELOMA
     Dosage: UNK UKN, UNK
     Route: 042
     Dates: start: 20080101, end: 20080701
  2. PREDNISONE [Suspect]
     Indication: MULTIPLE MYELOMA
     Dosage: UNK UKN, UNK
     Dates: start: 20080101, end: 20080701
  3. ZOMETA [Suspect]
     Indication: MULTIPLE MYELOMA
     Dosage: 4 MG, QMO
     Route: 042
     Dates: start: 20061101
  4. NEXIUM [Suspect]
     Dosage: 20 MG, DAILY
     Dates: start: 20070101
  5. FOLIC ACID [Concomitant]
     Dosage: 5 MG, UNK
  6. IMPORTAL [Concomitant]
     Dosage: 40 ML, UNK
  7. REVLIMID [Suspect]
     Indication: MULTIPLE MYELOMA
     Dosage: 25 MG, QD, CYCLIC APPLICATION
     Dates: start: 20090414, end: 20090506
  8. OXYCODONE HCL [Concomitant]
     Dosage: 5 MG, UNK
  9. DISTRANEURIN [Concomitant]
     Dosage: 600 MG, QD
  10. ZOLPIDEM TARTRATE [Concomitant]
     Dosage: 12.5 MG, QD
  11. CLOBETASOL PROPIONATE [Concomitant]
     Dosage: 2 DF, UNK
  12. KEPPRA [Concomitant]
     Dosage: 500 MG, QD
  13. VELCADE [Suspect]
     Indication: MULTIPLE MYELOMA
     Dosage: 1.3 MG/M2, CYCLIC APPLICATION
     Route: 042
     Dates: start: 20090525, end: 20091112
  14. DEXAMETHASONE [Suspect]
     Indication: MULTIPLE MYELOMA
     Dosage: 20 MG, DAILY, CYCLIC APPLICATION
     Dates: start: 20090414, end: 20090506
  15. ASPIRIN [Concomitant]
     Dosage: 100 MG, QD
  16. SIMVASTATIN [Concomitant]
     Dosage: 20 MG, QD
  17. EFFEXOR [Concomitant]
     Dosage: 150 MG, QD
  18. ACETAMINOPHEN [Concomitant]
     Dosage: 1000 MG, QD

REACTIONS (3)
  - BONE DISORDER [None]
  - OSTEONECROSIS OF JAW [None]
  - OSTEOMYELITIS [None]
